FAERS Safety Report 16576395 (Version 1)
Quarter: 2019Q3

REPORT INFORMATION
  Report Type: Spontaneous
  Country: US (occurrence: US)
  Receive Date: 20190602
  Receipt Date: 20190602
  Transmission Date: 20191004
  Serious: No
  Sender: FDA-Public Use
  Company Number: None

PATIENT
  Sex: Female

DRUGS (1)
  1. AVONEX [Suspect]
     Active Substance: INTERFERON BETA-1A
     Indication: MULTIPLE SCLEROSIS
     Route: 030
     Dates: start: 20190503

REACTIONS (7)
  - Pain [None]
  - Headache [None]
  - Paraesthesia [None]
  - Visual impairment [None]
  - Muscular weakness [None]
  - Hypoaesthesia [None]
  - Dizziness [None]
